FAERS Safety Report 11319225 (Version 9)
Quarter: 2018Q1

REPORT INFORMATION
  Report Type: Spontaneous
  Country: US (occurrence: US)
  Receive Date: 20150729
  Receipt Date: 20180104
  Transmission Date: 20180508
  Serious: No
  Sender: FDA-Public Use
  Company Number: US-ACTELION PHARMACEUTICALS US, INC.-A-US2015-118039

PATIENT
  Age: 62 Year
  Sex: Female

DRUGS (5)
  1. OPSUMIT [Suspect]
     Active Substance: MACITENTAN
     Indication: PULMONARY ARTERIAL HYPERTENSION
     Dosage: 10 MG, QD
     Route: 048
     Dates: start: 20150421
  2. ALBUTEROL. [Concomitant]
     Active Substance: ALBUTEROL
  3. MVI [Concomitant]
     Active Substance: VITAMINS
  4. PREDNISONE. [Concomitant]
     Active Substance: PREDNISONE
  5. OPSUMIT [Suspect]
     Active Substance: MACITENTAN
     Dosage: UNK
     Route: 048

REACTIONS (9)
  - Musculoskeletal discomfort [Recovering/Resolving]
  - Fatigue [Unknown]
  - Contusion [Unknown]
  - Headache [Unknown]
  - Visual impairment [Unknown]
  - Anaemia [Unknown]
  - Arthralgia [Unknown]
  - Pain [Recovering/Resolving]
  - Pollakiuria [Unknown]

NARRATIVE: CASE EVENT DATE: 20150421
